FAERS Safety Report 5960512-6 (Version None)
Quarter: 2008Q4

REPORT INFORMATION
  Report Type: 
  Country: None (occurrence: None)
  Receive Date: 20081120
  Receipt Date: 20081110
  Transmission Date: 20090506
  Serious: Yes (Other)
  Sender: FDA-Public Use
  Company Number: IN-PFIZER INC-2008096718

PATIENT
  Age: 35 Year
  Sex: Female

DRUGS (3)
  1. FLUCONAZOLE [Suspect]
     Indication: ORAL CANDIDIASIS
     Dosage: DAILY DOSE:200MG-FREQ:SINGLE ADMINISTRATION
     Route: 048
  2. CISPLATIN [Concomitant]
     Indication: GASTRIC CANCER
  3. ADRIAMYCIN PFS [Concomitant]
     Indication: GASTRIC CANCER

REACTIONS (1)
  - DRUG ERUPTION [None]
